FAERS Safety Report 16344008 (Version 1)
Quarter: 2019Q2

REPORT INFORMATION
  Report Type: Spontaneous
  Country: US (occurrence: US)
  Receive Date: 20190522
  Receipt Date: 20190522
  Transmission Date: 20190711
  Serious: No
  Sender: FDA-Public Use
  Company Number: US-AMAG PHARMACEUTICALS, INC.-AMAG201900737

PATIENT
  Age: 64 Year
  Sex: Female

DRUGS (2)
  1. INTRAROSA [Suspect]
     Active Substance: PRASTERONE
     Indication: VULVOVAGINAL DRYNESS
  2. INTRAROSA [Suspect]
     Active Substance: PRASTERONE
     Indication: POSTMENOPAUSE
     Dosage: UNK
     Route: 067
     Dates: start: 2018, end: 201901

REACTIONS (4)
  - Prolapse [Unknown]
  - Vulvovaginal mycotic infection [Unknown]
  - Benign anorectal neoplasm [Unknown]
  - Off label use [Unknown]

NARRATIVE: CASE EVENT DATE: 2018
